FAERS Safety Report 7260595-X (Version None)
Quarter: 2011Q1

REPORT INFORMATION
  Report Type: 
  Country: None (occurrence: None)
  Receive Date: 20110130
  Receipt Date: 20101110
  Transmission Date: 20110831
  Serious: No
  Sender: FDA-Public Use
  Company Number: US-ABBOTT-10P-163-0684644-00

PATIENT
  Age: 49 Year
  Sex: Female

DRUGS (11)
  1. PREVACID [Concomitant]
     Indication: PRODUCT USED FOR UNKNOWN INDICATION
  2. HUMIRA [Suspect]
     Indication: AUTOIMMUNE INNER EAR DISEASE
     Dates: start: 20101101
  3. MECLIZINE [Concomitant]
     Indication: DIZZINESS
     Dosage: 1-2 TIMES DAILY AS NEEDED
  4. SPIRONOLACTONE [Concomitant]
     Indication: INNER EAR DISORDER
  5. PREDNISONE [Concomitant]
     Indication: AUTOIMMUNE INNER EAR DISEASE
     Route: 048
  6. CYMBALTA [Concomitant]
     Indication: HEADACHE
     Route: 048
  7. INDERAL [Concomitant]
     Indication: HEADACHE
     Route: 048
  8. DIAZEPAM [Concomitant]
     Indication: DIZZINESS
     Route: 048
  9. ZOFRAN [Concomitant]
     Indication: NAUSEA
     Route: 048
  10. ACTONEL [Concomitant]
     Indication: OSTEOPOROSIS
  11. FIORINAL [Concomitant]
     Indication: HEADACHE

REACTIONS (3)
  - NAUSEA [None]
  - HEADACHE [None]
  - FUNGAL INFECTION [None]
